FAERS Safety Report 21506101 (Version 1)
Quarter: 2022Q4

REPORT INFORMATION
  Report Type: Spontaneous
  Country: US (occurrence: US)
  Receive Date: 20221026
  Receipt Date: 20221026
  Transmission Date: 20230112
  Serious: Yes (Other)
  Sender: FDA-Public Use
  Company Number: US-STRIDES ARCOLAB LIMITED-2022SP013932

PATIENT
  Age: 65 Year
  Sex: Male

DRUGS (3)
  1. OXYCODONE [Suspect]
     Active Substance: OXYCODONE
     Indication: Procedural pain
     Dosage: UNK (THE PATIENT RECEIVED OXYCODONE 5MG EVERY FOUR HOURS AS NEEDED FOR PAIN LEVEL 1-5 AND 10MG FOR P
     Route: 065
  2. MELOXICAM [Concomitant]
     Active Substance: MELOXICAM
     Indication: Procedural pain
     Dosage: 15 MILLIGRAM, PER DAY
     Route: 065
  3. ASPIRIN [Concomitant]
     Active Substance: ASPIRIN
     Indication: Procedural pain
     Dosage: 325 MILLIGRAM, PER DAY
     Route: 065

REACTIONS (2)
  - Procedural pain [Recovered/Resolved]
  - Rebound effect [Recovered/Resolved]
